FAERS Safety Report 6937203-8 (Version None)
Quarter: 2010Q3

REPORT INFORMATION
  Report Type: 
  Country: None (occurrence: None)
  Receive Date: 20100823
  Receipt Date: 20100816
  Transmission Date: 20110219
  Serious: Yes (Hospitalization)
  Sender: FDA-Public Use
  Company Number: A0876616A

PATIENT
  Age: 58 Year
  Sex: Female
  Weight: 89.7 kg

DRUGS (10)
  1. ADVAIR DISKUS 100/50 [Suspect]
     Route: 055
     Dates: start: 20100127
  2. ALBUTEROL [Suspect]
     Route: 055
     Dates: start: 20100129
  3. STUDY MEDICATION [Suspect]
     Dates: start: 20100203
  4. RADIOTHERAPY [Suspect]
     Dates: start: 20100203, end: 20100219
  5. MS CONTIN [Suspect]
     Dosage: 45MG TWICE PER DAY
     Route: 048
     Dates: start: 20100129
  6. REMERON [Suspect]
     Dosage: 50MG AS REQUIRED
     Route: 048
     Dates: start: 20100129
  7. DILANTIN [Suspect]
     Dates: end: 20100314
  8. KEPPRA [Suspect]
     Dosage: 1500MG TWICE PER DAY
     Route: 048
  9. SPIRIVA [Suspect]
     Dosage: 1PUFF PER DAY
     Route: 055
     Dates: start: 20100129
  10. DECADRON [Suspect]
     Dosage: 4MG TWICE PER DAY
     Route: 048
     Dates: start: 20100129

REACTIONS (2)
  - DYSPNOEA [None]
  - PULMONARY EMBOLISM [None]
